FAERS Safety Report 6801702-X (Version None)
Quarter: 2010Q2

REPORT INFORMATION
  Report Type: 
  Country: None (occurrence: None)
  Receive Date: 20100629
  Receipt Date: 20100622
  Transmission Date: 20101027
  Serious: Yes (Other)
  Sender: FDA-Public Use
  Company Number: BR-BRISTOL-MYERS SQUIBB COMPANY-15166499

PATIENT
  Age: 45 Year
  Sex: Female
  Weight: 72 kg

DRUGS (2)
  1. TAXOL INJ 300 MG/50 ML [Suspect]
     Indication: BREAST CANCER
     Dosage: ROA : ENDOVENOUS
     Route: 042
     Dates: start: 20091027
  2. XELODA [Suspect]
     Dates: start: 20090421, end: 20090907

REACTIONS (1)
  - PALMAR-PLANTAR ERYTHRODYSAESTHESIA SYNDROME [None]
